FAERS Safety Report 10451837 (Version 2)
Quarter: 2014Q3

REPORT INFORMATION
  Report Type: Report from Study
  Country: US (occurrence: US)
  Receive Date: 20140915
  Receipt Date: 20140915
  Transmission Date: 20150326
  Serious: Yes (Other)
  Sender: FDA-Public Use
  Company Number: US-BIOGENIDEC-2013BI122815

PATIENT
  Age: 33 Year
  Sex: Female

DRUGS (5)
  1. BACLOFEN. [Concomitant]
     Active Substance: BACLOFEN
  2. TYSABRI [Suspect]
     Active Substance: NATALIZUMAB
     Indication: MULTIPLE SCLEROSIS
     Route: 042
     Dates: start: 20100721, end: 20131114
  3. VITAMIN D [Concomitant]
     Active Substance: CHOLECALCIFEROL
  4. TOVIAZ [Concomitant]
     Active Substance: FESOTERODINE FUMARATE
  5. PRENATAL VITAMIN [Concomitant]
     Active Substance: VITAMINS

REACTIONS (1)
  - Caesarean section [Unknown]

NARRATIVE: CASE EVENT DATE: 20140730
